FAERS Safety Report 4627942-6 (Version None)
Quarter: 2005Q2

REPORT INFORMATION
  Report Type: 
  Country: None (occurrence: None)
  Receive Date: 20050401
  Receipt Date: 20041201
  Transmission Date: 20051028
  Serious: Yes (Death)
  Sender: FDA-Public Use
  Company Number: 9372

PATIENT
  Sex: Female

DRUGS (5)
  1. MITOMYCIN [Suspect]
     Indication: LEIOMYOSARCOMA
     Dosage: 6 MG/M2 DAILY IV
     Route: 042
  2. DOXORUBICIN HCL [Suspect]
     Indication: LEIOMYOSARCOMA
     Dosage: 40 MG/M2 DAILY IV
     Route: 042
  3. CISPLATIN [Suspect]
     Indication: LEIOMYOSARCOMA
     Dosage: 60 MG/M2 DAILY IV
     Route: 042
  4. DACARBAZINE [Suspect]
     Indication: LEIOMYOSARCOMA
     Dosage: 750 MG/M2 DAILY IV
     Route: 042
  5. GM-CSF [Concomitant]

REACTIONS (1)
  - PULMONARY TOXICITY [None]
